FAERS Safety Report 7085575-9 (Version None)
Quarter: 2010Q4

REPORT INFORMATION
  Report Type: 
  Country: None (occurrence: None)
  Receive Date: 20101105
  Receipt Date: 20101027
  Transmission Date: 20110411
  Serious: Yes (Life-Threatening, Other)
  Sender: FDA-Public Use
  Company Number: US-BAYER-201044124GPV

PATIENT
  Age: 21 Year
  Sex: Male
  Weight: 57 kg

DRUGS (14)
  1. PHENYLEPHRINE HCL [Suspect]
     Indication: LOCAL ANAESTHESIA
     Dosage: APPROXIMATELY 5 TO 10 ML OF 2.5% PHENYLEPHRINE-SOAKED PLEDGETS
     Route: 045
  2. EPINEPHRINE [Interacting]
     Indication: LOCAL ANAESTHESIA
  3. EPINEPHRINE [Interacting]
     Dosage: 6 ML OF 1% LIDOCAINE WITH EPINEPHRINE
  4. EPINEPHRINE [Interacting]
     Dosage: 4 MG OF 1:10000; TOTAL OF 40 ML
  5. KETAMINE [Interacting]
     Indication: INDUCTION OF ANAESTHESIA
     Route: 042
  6. KETAMINE [Interacting]
  7. MIDAZOLAM [Concomitant]
     Indication: ANXIETY
     Route: 042
  8. METHYLPREDNISOLONE [Concomitant]
     Indication: ADRENAL INSUFFICIENCY
     Route: 042
  9. DEXMEDETOMIDINE HYDROCHLORIDE [Concomitant]
     Dosage: DOSE RANGE OF 1 TO 3 MCG/KG
     Route: 042
  10. LIDOCAINE [Concomitant]
     Indication: LOCAL ANAESTHESIA
     Dosage: TOTAL OF 6 ML OF 1% LIDOCAINE
  11. LIDOCAINE [Concomitant]
  12. LIDOCAINE [Concomitant]
  13. ROCURONIUM BROMIDE [Concomitant]
     Indication: PARALYSIS
     Route: 042
  14. SEVOFLURANE [Concomitant]
     Indication: ANAESTHESIA PROCEDURE
     Dosage: DOSE RANGE OF 1.8% TO 2%

REACTIONS (3)
  - BLOOD PRESSURE INCREASED [None]
  - CARDIOGENIC SHOCK [None]
  - ELECTROMECHANICAL DISSOCIATION [None]
